FAERS Safety Report 18645871 (Version 1)
Quarter: 2020Q4

REPORT INFORMATION
  Report Type: Spontaneous
  Country: GB (occurrence: GB)
  Receive Date: 20201221
  Receipt Date: 20201221
  Transmission Date: 20210114
  Serious: Yes (Death, Hospitalization)
  Sender: FDA-Public Use
  Company Number: GB-PERRIGO-20GB017954

PATIENT

DRUGS (1)
  1. PARACETAMOL [Suspect]
     Active Substance: ACETAMINOPHEN
     Indication: PRODUCT USED FOR UNKNOWN INDICATION
     Dosage: GIVEN ON 11 DAYS OUT OF THE 28 DAYS PARACETAMOL WAS PRESCRIBED
     Route: 065
     Dates: start: 20200108

REACTIONS (5)
  - Multiple organ dysfunction syndrome [Fatal]
  - Pneumonia [Fatal]
  - Drug-induced liver injury [Fatal]
  - Product prescribing error [Fatal]
  - Nausea [Fatal]
